FAERS Safety Report 13018964 (Version 1)
Quarter: 2016Q4

REPORT INFORMATION
  Report Type: Spontaneous
  Country: CN (occurrence: CN)
  Receive Date: 20161212
  Receipt Date: 20161212
  Transmission Date: 20170207
  Serious: Yes (Other)
  Sender: FDA-Public Use
  Company Number: CN-PFIZER INC-2016574528

PATIENT
  Age: 52 Year
  Sex: Male
  Weight: 66 kg

DRUGS (3)
  1. FOSFOMYCIN SODIUM [Concomitant]
     Active Substance: FOSFOMYCIN SODIUM
     Indication: ACINETOBACTER BACTERAEMIA
     Dosage: 4 G, 2X/DAY
     Route: 041
     Dates: start: 20160906, end: 20161011
  2. LIPITOR [Suspect]
     Active Substance: ATORVASTATIN CALCIUM
     Indication: HYPERLIPIDAEMIA
     Dosage: 40 MG, 1X/DAY
     Route: 048
     Dates: start: 20160829, end: 20161013
  3. SULPERAZON [Suspect]
     Active Substance: CEFOPERAZONE SODIUM\SULBACTAM SODIUM
     Indication: ACINETOBACTER BACTERAEMIA
     Dosage: 3 G, 3X/DAY
     Route: 041
     Dates: start: 20160914, end: 20161013

REACTIONS (2)
  - Amino acid level abnormal [Recovering/Resolving]
  - Liver function test abnormal [Recovering/Resolving]

NARRATIVE: CASE EVENT DATE: 20161013
